FAERS Safety Report 4525612-6 (Version None)
Quarter: 2004Q4

REPORT INFORMATION
  Report Type: 
  Country: None (occurrence: None)
  Receive Date: 20041213
  Receipt Date: 20041213
  Transmission Date: 20050328
  Serious: Yes (Other)
  Sender: FDA-Public Use
  Company Number: None

PATIENT
  Sex: Male
  Weight: 101.6057 kg

DRUGS (6)
  1. ARICEPT [Suspect]
     Dosage: 10MG  QD ORAL
     Route: 048
  2. NAMENDA [Suspect]
     Dosage: 10MG   BID    ORAL
     Route: 048
  3. DONEPEZIL HCL [Concomitant]
  4. MEMANTINE [Concomitant]
  5. ZOCOR [Concomitant]
  6. SIMVASTATIN [Concomitant]

REACTIONS (1)
  - MEDICATION ERROR [None]
